FAERS Safety Report 9915213 (Version 1)
Quarter: 2014Q1

REPORT INFORMATION
  Report Type: Report from Study
  Country: US (occurrence: US)
  Receive Date: 20140220
  Receipt Date: 20140220
  Transmission Date: 20141002
  Serious: Yes (Other)
  Sender: FDA-Public Use
  Company Number: US-ROCHE-1296054

PATIENT
  Sex: Female

DRUGS (9)
  1. AVASTIN [Suspect]
     Indication: DIABETIC RETINAL OEDEMA
     Route: 065
     Dates: start: 20110527
  2. AVASTIN [Suspect]
     Indication: VITREOUS ADHESIONS
  3. AVASTIN [Suspect]
     Indication: DIABETIC RETINOPATHY
  4. LUCENTIS [Suspect]
     Indication: DIABETIC RETINAL OEDEMA
     Dosage: OS
     Route: 065
     Dates: start: 20130208
  5. LUCENTIS [Suspect]
     Indication: VITREOUS ADHESIONS
  6. LUCENTIS [Suspect]
     Indication: DIABETIC RETINOPATHY
  7. MINITRAN (UNITED STATES) [Concomitant]
     Dosage: APPLY ONE PATCH EVERY DAY REMOVE AT NIGHT 10-12 HR, 0.4MG/HR
     Route: 062
  8. JANUVIA [Concomitant]
  9. METFORMIN [Concomitant]
     Dosage: TWO TIMES EVERY DAY WITH MORNING AND EVENING MEALS
     Route: 048

REACTIONS (1)
  - Diabetic retinal oedema [Unknown]
